FAERS Safety Report 5417158-8 (Version None)
Quarter: 2007Q3

REPORT INFORMATION
  Report Type: 
  Country: None (occurrence: None)
  Receive Date: 20070718
  Receipt Date: 20070517
  Transmission Date: 20080115
  Serious: Yes (Other)
  Sender: FDA-Public Use
  Company Number: 2007039978

PATIENT
  Age: 50 Year
  Sex: Male
  Weight: 90.45 kg

DRUGS (9)
  1. CELEBREX [Suspect]
     Indication: OSTEOARTHRITIS
     Dosage: 200 MG (100 MG, 2 IN 1 D)
     Dates: end: 20070510
  2. OVAR (BECLOMETASONE DIPROPIONATE) [Concomitant]
  3. MONTELUKAST SODIUM [Concomitant]
  4. ALLEGRA [Concomitant]
  5. FLUTICASONE PROPIONATE [Concomitant]
  6. ACIPHEX [Concomitant]
  7. ATACAND [Concomitant]
  8. TAMSULOSIN HYDROCHLORIDE (TAMSULOSIN HYDROCHLORIDE) [Concomitant]
  9. AVODART [Concomitant]

REACTIONS (2)
  - ASTHMA [None]
  - PAIN [None]
